FAERS Safety Report 5603533-5 (Version None)
Quarter: 2008Q1

REPORT INFORMATION
  Report Type: 
  Country: None (occurrence: None)
  Receive Date: 20080122
  Receipt Date: 20080116
  Transmission Date: 20080703
  Serious: Yes (Other)
  Sender: FDA-Public Use
  Company Number: 070132

PATIENT
  Age: 57 Year
  Sex: Female
  Weight: 63.5036 kg

DRUGS (2)
  1. HALFLYTELY [Suspect]
     Indication: COLONOSCOPY
     Dosage: 10 MG, 1X PO
     Route: 048
     Dates: start: 20071102
  2. TYLENOL [Concomitant]

REACTIONS (9)
  - ABDOMINAL PAIN [None]
  - COLD SWEAT [None]
  - DIZZINESS [None]
  - FEELING COLD [None]
  - HYPOAESTHESIA [None]
  - HYPOTENSION [None]
  - NAUSEA [None]
  - PARAESTHESIA [None]
  - VOMITING [None]
